FAERS Safety Report 11831386 (Version 1)
Quarter: 2015Q4

REPORT INFORMATION
  Report Type: Spontaneous
  Country: US (occurrence: None)
  Receive Date: 20151211
  Receipt Date: 20151211
  Transmission Date: 20160305
  Serious: Yes (Other)
  Sender: FDA-Public Use
  Company Number: None

PATIENT
  Age: 67 Year
  Sex: Male
  Weight: 91.17 kg

DRUGS (10)
  1. GLIP-ZIDE [Concomitant]
  2. LOSARTAN. [Suspect]
     Active Substance: LOSARTAN
  3. CALCITROIL [Concomitant]
  4. FISH OIL [Concomitant]
     Active Substance: FISH OIL
  5. ATENOLOL. [Concomitant]
     Active Substance: ATENOLOL
  6. VITAMIN D3 [Concomitant]
     Active Substance: CHOLECALCIFEROL
  7. ALLOPURINOL. [Concomitant]
     Active Substance: ALLOPURINOL
  8. ASPIRIN. [Concomitant]
     Active Substance: ASPIRIN
  9. SODIUM BICARBONATE. [Concomitant]
     Active Substance: SODIUM BICARBONATE
  10. LOSARTAN. [Suspect]
     Active Substance: LOSARTAN
     Indication: HYPERTENSION
     Route: 048
     Dates: start: 20151123, end: 20151207

REACTIONS (2)
  - Product substitution issue [None]
  - Blood pressure increased [None]

NARRATIVE: CASE EVENT DATE: 20151123
